FAERS Safety Report 8311394-9 (Version None)
Quarter: 2012Q2

REPORT INFORMATION
  Report Type: 
  Country: None (occurrence: None)
  Receive Date: 20120425
  Receipt Date: 20110613
  Transmission Date: 20120825
  Serious: No
  Sender: FDA-Public Use
  Company Number: US-MYLANLABS-2011S1012309

PATIENT
  Sex: Female

DRUGS (4)
  1. DUONEB [Suspect]
     Indication: LUNG DISORDER
     Route: 055
  2. DUONEB [Suspect]
     Route: 055
  3. DUONEB [Suspect]
     Route: 055
  4. DUONEB [Suspect]
     Route: 055

REACTIONS (1)
  - DRUG INEFFECTIVE [None]
